FAERS Safety Report 21094752 (Version 7)
Quarter: 2022Q4

REPORT INFORMATION
  Report Type: Report from Study
  Country: ES (occurrence: None)
  Receive Date: 20220718
  Receipt Date: 20221007
  Transmission Date: 20230113
  Serious: Yes (Death, Life-Threatening)
  Sender: FDA-Public Use
  Company Number: ES-ROCHE-3130304

PATIENT
  Age: 73 Year
  Sex: Female
  Weight: 39.7 kg

DRUGS (28)
  1. RUNIMOTAMAB [Suspect]
     Active Substance: RUNIMOTAMAB
     Indication: Metastatic neoplasm
     Dosage: STRENGTH - 6 MG/ML?ON 29/JUN/2022 (1:00 PM- 5:00 PM), RECEIVED THE LAST DOSE ( 90 MG) PRIOR TO AE/SA
     Route: 042
     Dates: start: 20220622
  2. TRASTUZUMAB [Suspect]
     Active Substance: TRASTUZUMAB
     Indication: Metastatic neoplasm
     Dosage: ON 21/JUN/2022, RECEIVED THE MOST RECENT DOSE PRIOR TO AE/SAE: 322.4 MG
     Route: 042
     Dates: start: 20220621
  3. TOCILIZUMAB [Suspect]
     Active Substance: TOCILIZUMAB
     Indication: Metastatic neoplasm
     Dosage: START DATE OF MOST RECENT DOSE 318.4 MG OF STUDY DRUG PRIOR TO AE AND SAE : 30-JUN-2022 6:00 PM
     Route: 042
     Dates: start: 20220630
  4. DEXKETOPROFEN [Concomitant]
     Active Substance: DEXKETOPROFEN
     Indication: Pain
     Route: 048
     Dates: start: 202006
  5. DEXKETOPROFEN [Concomitant]
     Active Substance: DEXKETOPROFEN
     Indication: Premedication
     Route: 042
     Dates: start: 20220621, end: 20220622
  6. DEXKETOPROFEN [Concomitant]
     Active Substance: DEXKETOPROFEN
     Indication: Cytokine release syndrome
     Route: 042
     Dates: start: 20220629, end: 20220629
  7. DEXKETOPROFEN [Concomitant]
     Active Substance: DEXKETOPROFEN
     Route: 042
     Dates: start: 20220629, end: 20220630
  8. DEXKETOPROFEN [Concomitant]
     Active Substance: DEXKETOPROFEN
     Route: 042
     Dates: start: 20220629, end: 20220630
  9. FAMOTIDINE [Concomitant]
     Active Substance: FAMOTIDINE
     Route: 048
     Dates: start: 20220614
  10. FAMOTIDINE [Concomitant]
     Active Substance: FAMOTIDINE
     Route: 042
     Dates: start: 20220629, end: 20220629
  11. FAMOTIDINE [Concomitant]
     Active Substance: FAMOTIDINE
     Route: 048
     Dates: start: 20220629, end: 20220629
  12. LEVOTHYROXINE [Concomitant]
     Active Substance: LEVOTHYROXINE
     Indication: Hypothyroidism
     Route: 048
     Dates: start: 201806, end: 20220629
  13. LEVOTHYROXINE [Concomitant]
     Active Substance: LEVOTHYROXINE
     Route: 042
     Dates: start: 20220630, end: 20220707
  14. LEVOTHYROXINE [Concomitant]
     Active Substance: LEVOTHYROXINE
     Route: 042
     Dates: start: 20220630, end: 20220708
  15. RANITIDINE [Concomitant]
     Active Substance: RANITIDINE
     Indication: Premedication
     Route: 042
     Dates: start: 20220621, end: 20220622
  16. RANITIDINE [Concomitant]
     Active Substance: RANITIDINE
     Indication: Hypersensitivity
     Route: 042
     Dates: start: 20220629, end: 20220629
  17. RANITIDINE [Concomitant]
     Active Substance: RANITIDINE
     Route: 042
     Dates: start: 20220630, end: 20220707
  18. DEXAMETHASONE [Concomitant]
     Active Substance: DEXAMETHASONE
     Indication: Premedication
     Route: 042
     Dates: start: 20220622, end: 20220622
  19. TIOTROPIUM BROMIDE [Concomitant]
     Active Substance: TIOTROPIUM BROMIDE
     Indication: Chronic obstructive pulmonary disease
     Route: 055
     Dates: start: 202006
  20. ASPIRIN [Concomitant]
     Active Substance: ASPIRIN
     Indication: Cardiovascular event prophylaxis
     Route: 048
     Dates: start: 201906
  21. NOREPINEPHRINE [Concomitant]
     Active Substance: NOREPINEPHRINE
     Indication: Cytokine release syndrome
     Route: 042
     Dates: start: 20220630, end: 20220702
  22. NOREPINEPHRINE [Concomitant]
     Active Substance: NOREPINEPHRINE
     Route: 042
     Dates: start: 20220702, end: 20220703
  23. VASOPRESINA [Concomitant]
     Indication: Cytokine release syndrome
     Route: 042
     Dates: start: 20220630, end: 20220702
  24. BEMIPARIN [Concomitant]
     Active Substance: BEMIPARIN
     Route: 058
     Dates: start: 20220630, end: 20220706
  25. IPRATROPIUM BROMIDE [Concomitant]
     Active Substance: IPRATROPIUM BROMIDE
     Indication: Chronic obstructive pulmonary disease
     Route: 055
     Dates: start: 20220703, end: 20220709
  26. DEXCHLORPHENIRAMINE [Concomitant]
     Active Substance: DEXCHLORPHENIRAMINE
     Indication: Hypersensitivity
     Route: 042
     Dates: start: 20220630, end: 20220703
  27. OMEPRAZOLE [Concomitant]
     Active Substance: OMEPRAZOLE
     Route: 048
     Dates: start: 202006, end: 20220614
  28. ENOXAPARIN [Concomitant]
     Active Substance: ENOXAPARIN
     Route: 058
     Dates: start: 20220708, end: 20220709

REACTIONS (2)
  - Cytokine release syndrome [Recovering/Resolving]
  - General physical health deterioration [Fatal]

NARRATIVE: CASE EVENT DATE: 20220629
